FAERS Safety Report 20475647 (Version 2)
Quarter: 2022Q1

REPORT INFORMATION
  Report Type: Report from Study
  Country: AR (occurrence: None)
  Receive Date: 20220215
  Receipt Date: 20220223
  Transmission Date: 20220423
  Serious: Yes (Hospitalization)
  Sender: FDA-Public Use
  Company Number: AR-Eisai Medical Research-EC-2022-108619

PATIENT
  Age: 65 Year
  Sex: Female
  Weight: 63.7 kg

DRUGS (13)
  1. LENVATINIB [Suspect]
     Active Substance: LENVATINIB
     Indication: Non-small cell lung cancer
     Route: 048
     Dates: start: 20210730
  2. CODELASA [CODEINE;GUAIFENESIN] [Concomitant]
     Dates: start: 20210624, end: 20210908
  3. ACETAMINOPHEN [Concomitant]
     Active Substance: ACETAMINOPHEN
     Dates: start: 20210713, end: 20210806
  4. APREPITANT [Concomitant]
     Active Substance: APREPITANT
     Dates: start: 20210730, end: 20210928
  5. DEXAMETHASONE [Concomitant]
     Active Substance: DEXAMETHASONE
     Dates: start: 20210730, end: 20210928
  6. ONDANSETRON [Concomitant]
     Active Substance: ONDANSETRON
     Dates: start: 20210730, end: 20210928
  7. METOCLOPRAMIDE [Concomitant]
     Active Substance: METOCLOPRAMIDE
     Dates: start: 20210730
  8. CARVEDILOL [Concomitant]
     Active Substance: CARVEDILOL
     Dates: start: 200101
  9. AMLODIPINE [Concomitant]
     Active Substance: AMLODIPINE BESYLATE
     Dates: start: 200101, end: 20211208
  10. PERINDOPRIL [Concomitant]
     Active Substance: PERINDOPRIL
     Dates: start: 200101
  11. RISPERIDONE [Concomitant]
     Active Substance: RISPERIDONE
     Dates: start: 200801, end: 20211208
  12. PANTOPRAZOLE [Concomitant]
     Active Substance: PANTOPRAZOLE
     Dates: start: 201001
  13. CLONAZEPAM [Concomitant]
     Active Substance: CLONAZEPAM
     Dates: start: 201101, end: 20211114

REACTIONS (1)
  - Asthenia [Not Recovered/Not Resolved]

NARRATIVE: CASE EVENT DATE: 20210803
